FAERS Safety Report 5755241-8 (Version None)
Quarter: 2008Q2

REPORT INFORMATION
  Report Type: 
  Country: None (occurrence: None)
  Receive Date: 20080528
  Receipt Date: 20080523
  Transmission Date: 20081010
  Serious: Yes (Death, Other)
  Sender: FDA-Public Use
  Company Number: 062-C5013-08031825

PATIENT
  Age: 78 Year
  Sex: Male
  Weight: 79 kg

DRUGS (8)
  1. CC-5013 (LENALIDOMIDE) (CAPSULES) [Suspect]
     Indication: NON-HODGKIN'S LYMPHOMA
     Dosage: 25 MG, 3 WEEKS ON ALTERNATING WITH 1 WEEK OFF, ORAL
     Route: 048
     Dates: start: 20080225, end: 20080301
  2. CC-5013 (LENALIDOMIDE) (CAPSULES) [Suspect]
     Indication: NON-HODGKIN'S LYMPHOMA
     Dosage: 25 MG, 3 WEEKS ON ALTERNATING WITH 1 WEEK OFF, ORAL
     Route: 048
     Dates: start: 20080324, end: 20080401
  3. DIGITOXIN TAB [Concomitant]
  4. ZOPICLON (ZOPICLONE) [Concomitant]
  5. FONDAPARINUX (FONDAPARINUX) [Concomitant]
  6. HYDROCHLOROTHIAZIDE [Concomitant]
  7. POTASSIUM (POTASSIUM) [Concomitant]
  8. ENOXAPARIN SODIUM [Concomitant]

REACTIONS (24)
  - ASTHENIA [None]
  - ATELECTASIS [None]
  - ATRIAL FIBRILLATION [None]
  - B-CELL LYMPHOMA RECURRENT [None]
  - BACK PAIN [None]
  - BLOOD BILIRUBIN INCREASED [None]
  - BLOOD CALCIUM DECREASED [None]
  - BLOOD CREATININE INCREASED [None]
  - BLOOD POTASSIUM DECREASED [None]
  - DECREASED APPETITE [None]
  - DISEASE PROGRESSION [None]
  - DYSPNOEA EXERTIONAL [None]
  - FATIGUE [None]
  - GENERAL PHYSICAL HEALTH DETERIORATION [None]
  - INSOMNIA [None]
  - MALIGNANT PLEURAL EFFUSION [None]
  - OEDEMA PERIPHERAL [None]
  - ORAL FUNGAL INFECTION [None]
  - ORAL PAIN [None]
  - PANCYTOPENIA [None]
  - PERICARDIAL EFFUSION MALIGNANT [None]
  - RASH [None]
  - RENAL FAILURE [None]
  - TUMOUR INVASION [None]
